FAERS Safety Report 4791878-0 (Version None)
Quarter: 2005Q4

REPORT INFORMATION
  Report Type: 
  Country: None (occurrence: None)
  Receive Date: 20051005
  Receipt Date: 20050905
  Transmission Date: 20060501
  Serious: Yes (Life-Threatening)
  Sender: FDA-Public Use
  Company Number: 2005RR-00745

PATIENT
  Age: 37 Year
  Sex: Female

DRUGS (3)
  1. FLUOXETINE [Suspect]
     Dosage: ORAL
     Route: 048
     Dates: start: 20050317, end: 20050424
  2. DEPO-PROVERA [Suspect]
     Indication: CONTRACEPTION
     Dosage: INTRAMUSCULAR
     Route: 030
     Dates: start: 20050201
  3. MULTIVATAMINS (MULTIVITAMINS) [Suspect]

REACTIONS (2)
  - ERYTHEMA MULTIFORME [None]
  - PEMPHIGOID [None]
